FAERS Safety Report 24409538 (Version 1)
Quarter: 2024Q4

REPORT INFORMATION
  Report Type: Spontaneous
  Country: GB (occurrence: GB)
  Receive Date: 20241008
  Receipt Date: 20241008
  Transmission Date: 20250114
  Serious: Yes (Life-Threatening, Disabling, Other)
  Sender: CHEPLAPHARM
  Company Number: None

PATIENT
  Age: 79 Year
  Sex: Female

DRUGS (1)
  1. OLANZAPINE [Suspect]
     Active Substance: OLANZAPINE

REACTIONS (3)
  - Cerebral atrophy [Not Recovered/Not Resolved]
  - Cerebrovascular disorder [Not Recovered/Not Resolved]
  - Medication error [Unknown]
